FAERS Safety Report 8720082 (Version 2)
Quarter: 2012Q4

REPORT INFORMATION
  Report Type: Report from Study
  Country: US (occurrence: US)
  Receive Date: 20120813
  Receipt Date: 20121016
  Transmission Date: 20130627
  Serious: Yes (Hospitalization)
  Sender: FDA-Public Use
  Company Number: US-ASTELLAS-2012US006744

PATIENT
  Age: 67 None
  Sex: Female
  Weight: 84 kg

DRUGS (4)
  1. ERLOTINIB TABLET [Suspect]
     Indication: ADENOCARCINOMA PANCREAS
     Dosage: 150 mg, D2-5, 9-12, 16-26
     Route: 048
     Dates: start: 20120710
  2. GEMCITABINE                        /01215702/ [Suspect]
     Indication: ADENOCARCINOMA PANCREAS
     Dosage: 1000 mg/m2, Day 1,8 and 15 of 28
     Route: 041
     Dates: start: 20120709, end: 20120723
  3. OXYCONTIN [Concomitant]
     Indication: PRODUCT USED FOR UNKNOWN INDICATION
     Dosage: 20 mg, bid
     Route: 048
     Dates: start: 20120710
  4. PERCOCET /00867901/ [Concomitant]
     Indication: BREAKTHROUGH PAIN
     Dosage: 1-2 tabs PRN
     Route: 065

REACTIONS (13)
  - Incorrect dose administered [Unknown]
  - Inappropriate schedule of drug administration [Unknown]
  - Hyponatraemia [Unknown]
  - Overdose [Unknown]
  - Mental status changes [Recovered/Resolved]
  - Hypovolaemia [Unknown]
  - Abdominal pain [Unknown]
  - Renal failure acute [Unknown]
  - Dehydration [Unknown]
  - Urinary tract infection [Recovered/Resolved]
  - Cellulitis [Recovered/Resolved]
  - Abdominal pain [Unknown]
  - Deep vein thrombosis [Unknown]
